FAERS Safety Report 7283726-4 (Version None)
Quarter: 2011Q1

REPORT INFORMATION
  Report Type: 
  Country: None (occurrence: None)
  Receive Date: 20110209
  Receipt Date: 20110201
  Transmission Date: 20110831
  Serious: Yes (Hospitalization)
  Sender: FDA-Public Use
  Company Number: JP-ELI_LILLY_AND_COMPANY-JP201102000692

PATIENT
  Age: 35 Year
  Sex: Female

DRUGS (6)
  1. LEVOTOMIN [Concomitant]
     Route: 048
  2. VEGETAMIN B [Concomitant]
     Route: 048
  3. ZYPREXA [Suspect]
     Route: 048
  4. LORFENAMIN [Concomitant]
     Route: 048
  5. PELEX [Concomitant]
     Route: 048
  6. TASMOLIN [Concomitant]
     Route: 048

REACTIONS (1)
  - LIVER DISORDER [None]
